FAERS Safety Report 4834727-4 (Version None)
Quarter: 2005Q4

REPORT INFORMATION
  Report Type: 
  Country: None (occurrence: None)
  Receive Date: 20051122
  Receipt Date: 20050720
  Transmission Date: 20060501
  Serious: No
  Sender: FDA-Public Use
  Company Number: US-BRISTOL-MYERS SQUIBB COMPANY-13044433

PATIENT
  Age: 72 Year
  Sex: Female

DRUGS (7)
  1. GLUCOPHAGE [Suspect]
     Indication: DIABETES MELLITUS
     Dates: start: 20030101, end: 20050606
  2. PRAVACHOL [Suspect]
     Indication: BLOOD CHOLESTEROL INCREASED
     Dates: start: 20021101, end: 20050507
  3. MIACALCIN [Concomitant]
  4. DIOVAN [Concomitant]
  5. MULTI-VITAMIN [Concomitant]
     Dosage: DOSAGE FORM = TABLET
  6. FOLIC ACID [Concomitant]
  7. CALCIUM + VITAMIN D [Concomitant]

REACTIONS (2)
  - ASTHENIA [None]
  - MYALGIA [None]
